FAERS Safety Report 6267104-2 (Version None)
Quarter: 2009Q3

REPORT INFORMATION
  Report Type: 
  Country: None (occurrence: None)
  Receive Date: 20090710
  Receipt Date: 20090706
  Transmission Date: 20100115
  Serious: No
  Sender: FDA-Public Use
  Company Number: TPG2009A00597

PATIENT
  Age: 77 Year
  Sex: Male

DRUGS (14)
  1. ACTOS [Suspect]
     Indication: TYPE 2 DIABETES MELLITUS
     Dosage: 15 MG (15 MG, 1 IN 1 D) PER ORAL
     Route: 048
  2. MARCUMAR [Concomitant]
  3. DIGOXIN [Concomitant]
  4. CRATAEUGUTT (CRATAEGUS LAEVIGATA EXTRACT) [Concomitant]
  5. METOPROLOL SUCCINATE [Concomitant]
  6. RAMIPRIL [Concomitant]
  7. TROMCARDIN (MAGNESIUM ASPARTATE, ASPARTATE POTASSIUM) [Concomitant]
  8. AMARYL [Concomitant]
  9. NOVONORM (REPAGLINIDE) [Concomitant]
  10. LANTUS [Concomitant]
  11. ALDACTONE [Concomitant]
  12. METFORMIN HCL [Concomitant]
  13. TORSEMIDE [Concomitant]
  14. FURO (FUROSEMIDE) [Concomitant]

REACTIONS (1)
  - INTERNATIONAL NORMALISED RATIO INCREASED [None]
